FAERS Safety Report 7311576-9 (Version None)
Quarter: 2011Q1

REPORT INFORMATION
  Report Type: 
  Country: None (occurrence: None)
  Receive Date: 20110216
  Receipt Date: 20110216
  Transmission Date: 20110831
  Serious: Yes (Other)
  Sender: FDA-Public Use
  Company Number: None

PATIENT
  Age: 47 Year
  Sex: Female
  Weight: 84.8226 kg

DRUGS (1)
  1. JANUVIA [Suspect]
     Dosage: 1 TABLET ONCE DAILY
     Dates: start: 20101211, end: 20110212

REACTIONS (4)
  - RASH [None]
  - UPPER RESPIRATORY TRACT INFECTION [None]
  - HEADACHE [None]
  - ASTHENIA [None]
